FAERS Safety Report 9383468 (Version 1)
Quarter: 2013Q3

REPORT INFORMATION
  Report Type: Spontaneous
  Country: FR (occurrence: FR)
  Receive Date: 20130704
  Receipt Date: 20130704
  Transmission Date: 20140515
  Serious: Yes (Other)
  Sender: FDA-Public Use
  Company Number: FR-PFIZER INC-2013196289

PATIENT
  Age: 65 Year
  Sex: Female

DRUGS (1)
  1. DOSTINEX [Suspect]
     Dosage: 2 DF, WEEKLY, ON EVERY TUESDAY

REACTIONS (1)
  - Gastric disorder [Unknown]
